FAERS Safety Report 7088575-8 (Version None)
Quarter: 2010Q4

REPORT INFORMATION
  Report Type: 
  Country: None (occurrence: None)
  Receive Date: 20101108
  Receipt Date: 20101101
  Transmission Date: 20110411
  Serious: Yes (Death, Hospitalization)
  Sender: FDA-Public Use
  Company Number: US-US-EMD SERONO, INC.-7025398

PATIENT
  Sex: Female

DRUGS (2)
  1. REBIF [Suspect]
     Indication: MULTIPLE SCLEROSIS
     Dates: start: 20020410, end: 20060601
  2. CYTOXAN [Suspect]
     Indication: MULTIPLE SCLEROSIS

REACTIONS (2)
  - INFECTION [None]
  - MYELODYSPLASTIC SYNDROME [None]
